FAERS Safety Report 5674473-0 (Version None)
Quarter: 2008Q2

REPORT INFORMATION
  Report Type: 
  Country: None (occurrence: None)
  Receive Date: 20080303
  Receipt Date: 20070328
  Transmission Date: 20081010
  Serious: Yes (Other)
  Sender: FDA-Public Use
  Company Number: MK-6031692

PATIENT
  Age: 47 Year
  Sex: Male

DRUGS (4)
  1. AMNESTEEM [Suspect]
     Indication: ROSACEA
     Dosage: 40 MG;DAILY;ORAL ; 20 MG;DAILY;ORAL ; 20 MG;EVERY OTHER DAY;ORAL
     Route: 048
     Dates: start: 20060922, end: 20061020
  2. AMNESTEEM [Suspect]
     Indication: ROSACEA
     Dosage: 40 MG;DAILY;ORAL ; 20 MG;DAILY;ORAL ; 20 MG;EVERY OTHER DAY;ORAL
     Route: 048
     Dates: start: 20061021, end: 20070205
  3. AMNESTEEM [Suspect]
     Indication: ROSACEA
     Dosage: 40 MG;DAILY;ORAL ; 20 MG;DAILY;ORAL ; 20 MG;EVERY OTHER DAY;ORAL
     Route: 048
     Dates: start: 20070205, end: 20070308
  4. SOTRET [Suspect]
     Indication: ACNE CYSTIC
     Dosage: 20 MG;DAILY;ORAL
     Route: 048

REACTIONS (4)
  - ARTHRALGIA [None]
  - BLOOD TRIGLYCERIDES INCREASED [None]
  - HEADACHE [None]
  - STOMACH DISCOMFORT [None]
